FAERS Safety Report 18573840 (Version 2)
Quarter: 2024Q1

REPORT INFORMATION
  Report Type: Report from Study
  Country: BE (occurrence: BE)
  Receive Date: 20201203
  Receipt Date: 20240321
  Transmission Date: 20240410
  Serious: Yes (Hospitalization, Other)
  Sender: FDA-Public Use
  Company Number: BE-ABBVIE-20K-013-3670694-00

PATIENT
  Age: 69 Year
  Sex: Male

DRUGS (42)
  1. HUMIRA [Suspect]
     Active Substance: ADALIMUMAB
     Indication: Colitis ulcerative
     Route: 058
     Dates: start: 20131002, end: 20150617
  2. HUMIRA [Suspect]
     Active Substance: ADALIMUMAB
     Route: 058
     Dates: start: 201508, end: 20151007
  3. ASPIRIN [Concomitant]
     Active Substance: ASPIRIN
     Indication: Cerebrovascular accident prophylaxis
     Route: 048
     Dates: start: 201405
  4. PENTASA [Concomitant]
     Active Substance: MESALAMINE
     Indication: Colitis ulcerative
     Route: 048
     Dates: start: 20120220
  5. LATANOTEARS [Concomitant]
     Indication: Dry eye
     Dosage: 1GTT (DROP(S) AS REQUIRED
     Route: 047
     Dates: start: 201405
  6. PERINDOPRIL [Concomitant]
     Active Substance: PERINDOPRIL
     Indication: Hypertension
     Route: 048
  7. BUDESONIDE\FORMOTEROL FUMARATE [Concomitant]
     Active Substance: BUDESONIDE\FORMOTEROL FUMARATE
     Indication: Dyspnoea
     Route: 055
     Dates: start: 20180208
  8. DAFALGAN [Concomitant]
     Active Substance: ACETAMINOPHEN
     Indication: Chest pain
     Dosage: AS REQUIRED
     Route: 048
     Dates: start: 20180201
  9. MUCOCLEAR [Concomitant]
     Indication: Dyspnoea
     Dosage: AS REQUIRED
     Route: 055
     Dates: start: 20180220
  10. VENTOLIN [Concomitant]
     Active Substance: ALBUTEROL SULFATE
     Indication: Dyspnoea
     Dosage: AS REQUIRED
     Route: 055
     Dates: start: 20180220
  11. ACLASTA [Concomitant]
     Active Substance: ZOLEDRONIC ACID
     Indication: Osteoporosis
     Route: 042
     Dates: start: 201806
  12. DEXTROMETHORPHAN HYDROBROMIDE [Concomitant]
     Active Substance: DEXTROMETHORPHAN HYDROBROMIDE
     Indication: Secretion discharge
     Dosage: AS REQUIRED
     Dates: start: 2018
  13. CACIT [Concomitant]
     Indication: Secretion discharge
     Route: 048
     Dates: start: 20200912
  14. ATORVASTATIN [Concomitant]
     Active Substance: ATORVASTATIN
     Indication: Hypercholesterolaemia
     Route: 048
     Dates: start: 20200912
  15. CLOPIDOGREL [Concomitant]
     Active Substance: CLOPIDOGREL BISULFATE
     Indication: Vascular disorder prophylaxis
     Route: 048
     Dates: start: 20200814
  16. TRAMADOL [Concomitant]
     Active Substance: TRAMADOL\TRAMADOL HYDROCHLORIDE
     Indication: Back pain
     Dosage: AS REQUIRED
     Route: 048
     Dates: start: 201805, end: 2020
  17. CALCIUM CARBONATE\CHOLECALCIFEROL [Concomitant]
     Active Substance: CALCIUM CARBONATE\CHOLECALCIFEROL
     Indication: Prophylaxis
     Route: 048
     Dates: start: 20200814, end: 20200911
  18. LIPITOR [Concomitant]
     Active Substance: ATORVASTATIN CALCIUM
     Indication: Hypercholesterolaemia
     Route: 048
     Dates: start: 20200813, end: 20200911
  19. NADROPARIN CALCIUM [Concomitant]
     Active Substance: NADROPARIN CALCIUM
     Indication: Thrombosis prophylaxis
     Route: 058
     Dates: start: 20200812, end: 20200911
  20. PRIVIGEN [Concomitant]
     Active Substance: HUMAN IMMUNOGLOBULIN G
     Indication: Hypogammaglobulinaemia
     Route: 042
     Dates: start: 20200813, end: 20200813
  21. XANAX [Concomitant]
     Active Substance: ALPRAZOLAM
     Indication: Insomnia
     Route: 048
     Dates: start: 20200812, end: 20200812
  22. XANAX [Concomitant]
     Active Substance: ALPRAZOLAM
     Indication: Insomnia
     Route: 048
     Dates: start: 20200905, end: 20200911
  23. ENTYVIO [Concomitant]
     Active Substance: VEDOLIZUMAB
     Indication: Colitis ulcerative
     Route: 042
     Dates: start: 20200821, end: 20200821
  24. PANTOPRAZOLE [Concomitant]
     Active Substance: PANTOPRAZOLE
     Indication: Prophylaxis
     Route: 042
     Dates: start: 20200901, end: 20200911
  25. ULTRA-K [Concomitant]
     Indication: Hypokalaemia
     Route: 048
     Dates: start: 20200907, end: 20200908
  26. ULTRA-K [Concomitant]
     Indication: Hypokalaemia
     Route: 048
     Dates: start: 20200905, end: 20200911
  27. MEDROL [Concomitant]
     Active Substance: METHYLPREDNISOLONE
     Indication: Colitis ulcerative
     Route: 048
     Dates: start: 20151006, end: 20151010
  28. MEDROL [Concomitant]
     Active Substance: METHYLPREDNISOLONE
     Indication: Colitis ulcerative
     Route: 048
     Dates: start: 20151011, end: 20151108
  29. MEDROL [Concomitant]
     Active Substance: METHYLPREDNISOLONE
     Indication: Colitis ulcerative
     Route: 048
     Dates: start: 20151109, end: 20151207
  30. MEDROL [Concomitant]
     Active Substance: METHYLPREDNISOLONE
     Indication: Colitis ulcerative
     Route: 048
     Dates: start: 20151208, end: 20160330
  31. MEDROL [Concomitant]
     Active Substance: METHYLPREDNISOLONE
     Indication: Colitis ulcerative
     Route: 048
     Dates: start: 20160331, end: 20160414
  32. MEDROL [Concomitant]
     Active Substance: METHYLPREDNISOLONE
     Indication: Colitis ulcerative
     Route: 048
     Dates: start: 20160415, end: 2016
  33. MEDROL [Concomitant]
     Active Substance: METHYLPREDNISOLONE
     Indication: Colitis ulcerative
     Route: 048
     Dates: start: 2016, end: 20161214
  34. MEDROL [Concomitant]
     Active Substance: METHYLPREDNISOLONE
     Indication: Colitis ulcerative
     Route: 048
     Dates: start: 20161215, end: 20170318
  35. MEDROL [Concomitant]
     Active Substance: METHYLPREDNISOLONE
     Indication: Colitis ulcerative
     Route: 048
     Dates: start: 20170319, end: 201704
  36. MEDROL [Concomitant]
     Active Substance: METHYLPREDNISOLONE
     Indication: Colitis ulcerative
     Route: 048
     Dates: start: 201704, end: 201705
  37. MEDROL [Concomitant]
     Active Substance: METHYLPREDNISOLONE
     Indication: Colitis ulcerative
     Route: 048
     Dates: start: 201705, end: 20180102
  38. MEDROL [Concomitant]
     Active Substance: METHYLPREDNISOLONE
     Indication: Colitis ulcerative
     Route: 048
     Dates: start: 20180103, end: 201810
  39. MEDROL [Concomitant]
     Active Substance: METHYLPREDNISOLONE
     Indication: Colitis ulcerative
     Route: 048
     Dates: start: 201810, end: 202003
  40. MEDROL [Concomitant]
     Active Substance: METHYLPREDNISOLONE
     Indication: Colitis ulcerative
     Route: 048
     Dates: start: 202003, end: 2020
  41. MEDROL [Concomitant]
     Active Substance: METHYLPREDNISOLONE
     Indication: Colitis ulcerative
     Route: 048
     Dates: start: 2020, end: 20210317
  42. MEDROL [Concomitant]
     Active Substance: METHYLPREDNISOLONE
     Indication: Colitis ulcerative
     Route: 048
     Dates: start: 20210317

REACTIONS (2)
  - Limb injury [Recovered/Resolved]
  - Peripheral arterial occlusive disease [Not Recovered/Not Resolved]

NARRATIVE: CASE EVENT DATE: 20200628
